FAERS Safety Report 17476863 (Version 1)
Quarter: 2020Q1

REPORT INFORMATION
  Report Type: Report from Study
  Country: CA (occurrence: CA)
  Receive Date: 20200228
  Receipt Date: 20200228
  Transmission Date: 20200409
  Serious: Yes (Other)
  Sender: FDA-Public Use
  Company Number: CA-JNJFOC-20190337381

PATIENT
  Age: 21 Year
  Sex: Male
  Weight: 66.7 kg

DRUGS (2)
  1. METHOTREXATE. [Concomitant]
     Active Substance: METHOTREXATE
     Route: 065
  2. STELARA [Suspect]
     Active Substance: USTEKINUMAB
     Indication: CROHN^S DISEASE
     Route: 058

REACTIONS (8)
  - Pharyngitis streptococcal [Recovered/Resolved]
  - Product dose omission [Unknown]
  - Urticaria [Recovering/Resolving]
  - Musculoskeletal chest pain [Recovering/Resolving]
  - Road traffic accident [Unknown]
  - Post-traumatic neck syndrome [Recovering/Resolving]
  - Ankle operation [Unknown]
  - Accident [Recovering/Resolving]

NARRATIVE: CASE EVENT DATE: 2019
